FAERS Safety Report 9221939 (Version 6)
Quarter: 2013Q3

REPORT INFORMATION
  Report Type: Spontaneous
  Country: US (occurrence: None)
  Receive Date: 20130408
  Receipt Date: 20130705
  Transmission Date: 20140515
  Serious: Yes (Disabling, Other)
  Sender: FDA-Public Use
  Company Number: ACO_35197_2013

PATIENT
  Sex: Female

DRUGS (2)
  1. AMPYRA [Suspect]
     Indication: PRODUCT USED FOR UNKNOWN INDICATION
     Dates: start: 20111115, end: 201212
  2. ALL OTHER THERAPEUTIC PRODUCTS [Concomitant]

REACTIONS (10)
  - Abasia [None]
  - Head injury [None]
  - Movement disorder [None]
  - Bedridden [None]
  - Fall [None]
  - Crying [None]
  - Inappropriate schedule of drug administration [None]
  - Therapy cessation [None]
  - Gait disturbance [None]
  - Gait disturbance [None]
